FAERS Safety Report 6677699-2 (Version None)
Quarter: 2010Q2

REPORT INFORMATION
  Report Type: 
  Country: None (occurrence: None)
  Receive Date: 20100412
  Receipt Date: 20100317
  Transmission Date: 20101027
  Serious: No
  Sender: FDA-Public Use
  Company Number: US-ALEXION-A201000314

PATIENT
  Sex: Female

DRUGS (4)
  1. SOLIRIS [Suspect]
     Indication: PAROXYSMAL NOCTURNAL HAEMOGLOBINURIA
     Dosage: 600 MG, QW
     Route: 042
     Dates: start: 20071018, end: 20071108
  2. SOLIRIS [Suspect]
     Dosage: 900 MG, Q2W
     Route: 042
     Dates: start: 20110511
  3. SOLIRIS [Suspect]
     Dosage: 900 MG, Q12D
     Route: 042
  4. VITAMIN TAB [Suspect]
     Dosage: UNK
     Dates: start: 20100101, end: 20100301

REACTIONS (2)
  - HAEMOGLOBIN DECREASED [None]
  - SWELLING FACE [None]
